FAERS Safety Report 18924943 (Version 11)
Quarter: 2025Q3

REPORT INFORMATION
  Report Type: Spontaneous
  Country: US (occurrence: US)
  Receive Date: 20210222
  Receipt Date: 20250917
  Transmission Date: 20251020
  Serious: Yes (Life-Threatening, Hospitalization, Other)
  Sender: PFIZER
  Company Number: US-PFIZER INC-2021155110

PATIENT
  Age: 76 Year
  Sex: Female

DRUGS (2)
  1. XELJANZ [Suspect]
     Active Substance: TOFACITINIB CITRATE
     Indication: Rheumatoid arthritis
     Dosage: 5 MG, 2X/DAY
     Route: 048
  2. XELJANZ [Suspect]
     Active Substance: TOFACITINIB CITRATE
     Dosage: 5 MG, 1X/DAY
     Route: 048

REACTIONS (10)
  - Malaise [Unknown]
  - Spinal fracture [Unknown]
  - Paralysis [Unknown]
  - Hip fracture [Unknown]
  - Cardiac failure congestive [Recovered/Resolved]
  - Post procedural complication [Unknown]
  - Illness [Unknown]
  - Condition aggravated [Unknown]
  - Speech disorder [Unknown]
  - Off label use [Unknown]
